FAERS Safety Report 9519089 (Version 2)
Quarter: 2013Q4

REPORT INFORMATION
  Report Type: Spontaneous
  Country: US (occurrence: US)
  Receive Date: 20130912
  Receipt Date: 20131008
  Transmission Date: 20140711
  Serious: No
  Sender: FDA-Public Use
  Company Number: US-PFIZER INC-2013259081

PATIENT
  Age: 71 Year
  Sex: Male
  Weight: 89.36 kg

DRUGS (3)
  1. IBUPROFEN [Suspect]
     Indication: BACK PAIN
     Dosage: UNK
     Dates: start: 2010
  2. NAPROXEN [Suspect]
     Indication: BACK PAIN
     Dosage: UNK
     Dates: start: 2010
  3. CARVEDILOL [Concomitant]
     Dosage: UNK

REACTIONS (1)
  - Back pain [Not Recovered/Not Resolved]
